FAERS Safety Report 9360977 (Version 5)
Quarter: 2014Q4

REPORT INFORMATION
  Report Type: Spontaneous
  Country: US (occurrence: US)
  Receive Date: 20130621
  Receipt Date: 20141104
  Transmission Date: 20150529
  Serious: Yes (Hospitalization, Disabling, Other)
  Sender: FDA-Public Use
  Company Number: US-009507513-1306USA008251

PATIENT
  Sex: Female
  Weight: 60.91 kg

DRUGS (8)
  1. FOSAMAX [Suspect]
     Active Substance: ALENDRONATE SODIUM
     Indication: OSTEOPENIA
     Dosage: 10 MG, UNK
     Route: 048
     Dates: start: 1998, end: 200010
  2. FOSAMAX [Suspect]
     Active Substance: ALENDRONATE SODIUM
     Indication: OSTEOPOROSIS
     Dosage: 70 MG, WEEKLY
     Route: 048
     Dates: start: 200010, end: 20070507
  3. LORATADINE. [Concomitant]
     Active Substance: LORATADINE
     Indication: HYPERSENSITIVITY
     Dosage: 10 MG, DAILY PRN
     Route: 048
  4. ALENDRONATE SODIUM. [Suspect]
     Active Substance: ALENDRONATE SODIUM
     Indication: OSTEOPENIA
     Dosage: 70 MG, WEEKLY IN MORNING
     Route: 048
     Dates: start: 20090105, end: 20090618
  5. ALENDRONATE SODIUM. [Suspect]
     Active Substance: ALENDRONATE SODIUM
     Indication: OSTEOPOROSIS
  6. FOSAMAX PLUS D [Suspect]
     Active Substance: ALENDRONATE SODIUM\CHOLECALCIFEROL
     Indication: OSTEOPENIA
     Dosage: 70 MG/2800 IU Q WEEKLY IN MORNING
     Route: 048
     Dates: start: 20070507, end: 20090108
  7. FOSAMAX PLUS D [Suspect]
     Active Substance: ALENDRONATE SODIUM\CHOLECALCIFEROL
     Indication: OSTEOPOROSIS
  8. VITAMINS (UNSPECIFIED) [Concomitant]
     Active Substance: VITAMINS
     Dosage: 200 IU, DAILY
     Dates: start: 1995

REACTIONS (34)
  - Dental caries [Unknown]
  - Hypercholesterolaemia [Unknown]
  - Colon adenoma [Unknown]
  - Facet joint syndrome [Unknown]
  - Urinary retention [Unknown]
  - Phlebolith [Unknown]
  - Angina unstable [Unknown]
  - Drug ineffective [Unknown]
  - Femur fracture [Recovered/Resolved]
  - Removal of internal fixation [Unknown]
  - Chronic sinusitis [Not Recovered/Not Resolved]
  - Road traffic accident [Unknown]
  - Depression [Unknown]
  - Intervertebral disc protrusion [Unknown]
  - Back pain [Not Recovered/Not Resolved]
  - Appendicectomy [Unknown]
  - Anxiety disorder [Unknown]
  - Pain in extremity [Unknown]
  - Low turnover osteopathy [Not Recovered/Not Resolved]
  - Hysterectomy [Unknown]
  - Hiatus hernia [Unknown]
  - Intramedullary rod insertion [Unknown]
  - Sinus operation [Unknown]
  - Intervertebral disc disorder [Unknown]
  - Spinal osteoarthritis [Unknown]
  - Insomnia [Unknown]
  - Musculoskeletal pain [Unknown]
  - Hypertension [Unknown]
  - Osteoarthritis [Unknown]
  - Atrophic vulvovaginitis [Unknown]
  - Abscess jaw [Unknown]
  - Spondylolisthesis [Unknown]
  - Spinal deformity [Unknown]
  - Lumbar spinal stenosis [Unknown]

NARRATIVE: CASE EVENT DATE: 20020404
